FAERS Safety Report 4370043-5 (Version None)
Quarter: 2004Q2

REPORT INFORMATION
  Report Type: 
  Country: None (occurrence: None)
  Receive Date: 20040527
  Receipt Date: 20040512
  Transmission Date: 20050107
  Serious: Yes (Hospitalization)
  Sender: FDA-Public Use
  Company Number: 2004-05-0643

PATIENT
  Age: 5 Year
  Sex: Female

DRUGS (3)
  1. CLARITIN [Suspect]
     Dosage: ORAL
     Route: 048
     Dates: start: 20031201
  2. CLARITIN [Suspect]
     Dosage: ORAL
     Route: 048
     Dates: start: 20040401
  3. SERETIDE (SALMETEROL XINAFOATE/FLUTICASONE PROPIONAT [Suspect]
     Dates: start: 20031203

REACTIONS (1)
  - THROMBOCYTOPENIC PURPURA [None]
